FAERS Safety Report 13312478 (Version 1)
Quarter: 2017Q1

REPORT INFORMATION
  Report Type: Report from Study
  Country: None (occurrence: CO)
  Receive Date: 20170309
  Receipt Date: 20170309
  Transmission Date: 20170428
  Serious: Yes (Hospitalization)
  Sender: FDA-Public Use
  Company Number: CO-ABBVIE-17K-036-1898329-00

PATIENT
  Age: 61 Year
  Sex: Male

DRUGS (1)
  1. HUMIRA [Suspect]
     Active Substance: ADALIMUMAB
     Indication: COLITIS ULCERATIVE
     Route: 058
     Dates: start: 20140718, end: 20161129

REACTIONS (3)
  - Laceration [Recovering/Resolving]
  - Fall [Recovering/Resolving]
  - Forearm fracture [Recovering/Resolving]

NARRATIVE: CASE EVENT DATE: 20170207
